FAERS Safety Report 22169320 (Version 8)
Quarter: 2023Q2

REPORT INFORMATION
  Report Type: Spontaneous
  Country: US (occurrence: US)
  Receive Date: 20230404
  Receipt Date: 20230506
  Transmission Date: 20230722
  Serious: Yes (Hospitalization, Other)
  Sender: FDA-Public Use
  Company Number: US-UNITED THERAPEUTICS-UNT-2023-008321

PATIENT
  Age: 64 Year
  Sex: Female
  Weight: 69.388 kg

DRUGS (12)
  1. REMODULIN [Suspect]
     Active Substance: TREPROSTINIL
     Indication: Pulmonary arterial hypertension
     Dosage: 0.030 ?G/KG, CONTINUING (PHARMACY FILLED WITH 2.8 ML/CASSETTE, RATE OF 27 MCL/HOUR)
     Route: 058
  2. REMODULIN [Suspect]
     Active Substance: TREPROSTINIL
     Dosage: 0.032 ?G/KG, CONTINUING (PHARMACY FILLED REMUNITY, PRE-FILLED WITH 3ML PER CASSETTE RATE OF 31 MCL P
     Route: 058
  3. REMODULIN [Suspect]
     Active Substance: TREPROSTINIL
     Dosage: UNK, CONTINUING (PHARMACY PRE-FILLED WITH 2.8 ML PER CASSETTE; RATE OF 29 MCL PER HOUR)
     Route: 058
  4. REMODULIN [Suspect]
     Active Substance: TREPROSTINIL
     Dosage: 0.034 ?G/KG, CONTINUING (PHARMACY FILLED REMUNITY, PRE-FILLED WITH 3ML PER CASSETTE RATE OF 31 MCL P
     Route: 058
  5. REMODULIN [Suspect]
     Active Substance: TREPROSTINIL
     Dosage: 0.038 ?G/KG, (PHARMACY FILLED REMUNITY, PRE-FILLED WITH 3 ML PER CASSETTE RATE OF 35 MCL PER HOUR),
     Route: 058
  6. REMODULIN [Suspect]
     Active Substance: TREPROSTINIL
     Dosage: UNK, CONTINUING
     Route: 058
     Dates: start: 20221026, end: 202304
  7. REMODULIN [Suspect]
     Active Substance: TREPROSTINIL
     Indication: Pulmonary arterial hypertension
     Dosage: 0.042 ?G/KG, CONTINUING (PHARMACY FILLED WITH 2ML PER CASSETTE; AT A PUMP RATE OF 19MCL PER HOUR)
     Route: 058
     Dates: start: 202304
  8. REMODULIN [Suspect]
     Active Substance: TREPROSTINIL
     Dosage: UNK, CONTINUING
     Route: 058
     Dates: start: 202304
  9. REMODULIN [Suspect]
     Active Substance: TREPROSTINIL
     Dosage: 0.040 ?G/KG (PHARMACY FILLED WITH 2ML PER CASSETTE; AT A PUMP RATE OF 19MCL PER HOUR), CONTINUING
     Route: 058
     Dates: start: 202304
  10. REMODULIN [Suspect]
     Active Substance: TREPROSTINIL
     Dosage: UNK, CONTINUING
     Route: 058
     Dates: start: 202304
  11. OPSUMIT [Concomitant]
     Active Substance: MACITENTAN
     Indication: Product used for unknown indication
     Dosage: UNK
     Route: 065
  12. SILDENAFIL [Concomitant]
     Active Substance: SILDENAFIL
     Indication: Product used for unknown indication
     Dosage: UNK
     Route: 065

REACTIONS (13)
  - Chest pain [Unknown]
  - Muscle strain [Unknown]
  - Cough [Unknown]
  - Cerebrovascular accident [Unknown]
  - Pruritus [Unknown]
  - Nasopharyngitis [Recovered/Resolved]
  - Insomnia [Unknown]
  - Pyrexia [Unknown]
  - Seasonal allergy [Not Recovered/Not Resolved]
  - Headache [Recovering/Resolving]
  - Sinus headache [Unknown]
  - Drug intolerance [Unknown]
  - Dizziness [Recovering/Resolving]

NARRATIVE: CASE EVENT DATE: 20230326
